FAERS Safety Report 5247730-X (Version None)
Quarter: 2007Q1

REPORT INFORMATION
  Report Type: 
  Country: None (occurrence: None)
  Receive Date: 20070220
  Receipt Date: 20070205
  Transmission Date: 20070707
  Serious: Yes (Other)
  Sender: FDA-Public Use
  Company Number: 2007SP002601

PATIENT
  Age: 3 Year
  Weight: 14 kg

DRUGS (1)
  1. LORATADINE [Suspect]
     Indication: DRUG USE FOR UNKNOWN INDICATION
     Dosage: 620 MG;ONCE;PO
     Route: 048

REACTIONS (2)
  - DRUG LEVEL INCREASED [None]
  - TACHYCARDIA [None]
